FAERS Safety Report 7298203-4 (Version None)
Quarter: 2011Q1

REPORT INFORMATION
  Report Type: 
  Country: None (occurrence: None)
  Receive Date: 20110131
  Receipt Date: 20110117
  Transmission Date: 20110831
  Serious: No
  Sender: FDA-Public Use
  Company Number: US-145089

PATIENT
  Age: 93 Year
  Sex: Female

DRUGS (1)
  1. WINRHO SDF LIQUID [Suspect]
     Indication: IDIOPATHIC THROMBOCYTOPENIC PURPURA
     Dosage: (40 ?G/KG)

REACTIONS (5)
  - CHOLELITHIASIS [None]
  - HAEMOGLOBIN DECREASED [None]
  - HAEMOLYSIS [None]
  - JAUNDICE [None]
  - CHOLECYSTITIS [None]
